FAERS Safety Report 11749425 (Version 1)
Quarter: 2015Q4

REPORT INFORMATION
  Report Type: Spontaneous
  Country: US (occurrence: None)
  Receive Date: 20151116
  Receipt Date: 20151116
  Transmission Date: 20160304
  Serious: No
  Sender: FDA-Public Use
  Company Number: None

PATIENT
  Sex: Female

DRUGS (1)
  1. FORTEO [Suspect]
     Active Substance: TERIPARATIDE
     Indication: OSTEOPOROSIS
     Route: 058
     Dates: start: 20151022

REACTIONS (8)
  - Arthralgia [None]
  - Chest discomfort [None]
  - Headache [None]
  - Dyspnoea [None]
  - Pruritus [None]
  - Abdominal discomfort [None]
  - Urticaria [None]
  - Dizziness [None]
